FAERS Safety Report 12439550 (Version 3)
Quarter: 2018Q4

REPORT INFORMATION
  Report Type: Spontaneous
  Country: US (occurrence: US)
  Receive Date: 20160606
  Receipt Date: 20181114
  Transmission Date: 20190204
  Serious: Yes (Other)
  Sender: FDA-Public Use
  Company Number: US-DSJP-DSU-2015-132964

PATIENT

DRUGS (11)
  1. LORAZEPAM A [Concomitant]
     Active Substance: LORAZEPAM
     Indication: ANXIETY
     Dosage: 0.5 MG,BID
     Dates: start: 200805
  2. NEXIUM [Concomitant]
     Active Substance: ESOMEPRAZOLE MAGNESIUM
     Indication: SKIN ULCER
     Dosage: 40 MG, UNK
     Dates: start: 200903, end: 200912
  3. BUDESONIDE. [Concomitant]
     Active Substance: BUDESONIDE
     Indication: DIARRHOEA
     Dosage: 3 MG,QD
     Dates: start: 201406
  4. BENICAR [Suspect]
     Active Substance: OLMESARTAN MEDOXOMIL
     Indication: HYPERTENSION
     Dosage: 20 MG, UNK
     Dates: start: 20041129, end: 201011
  5. METOPROLOL TARTRATE. [Concomitant]
     Active Substance: METOPROLOL TARTRATE
     Indication: HYPERTENSION
     Dosage: 50 MG, TID
     Dates: start: 200909
  6. EVISTA [Concomitant]
     Active Substance: RALOXIFENE HYDROCHLORIDE
     Indication: OSTEOPOROSIS
     Dosage: 60 MG, UNK
     Dates: start: 20060714
  7. PANTOPRAZOLE [Concomitant]
     Active Substance: PANTOPRAZOLE
     Indication: PRODUCT USED FOR UNKNOWN INDICATION
     Dosage: 40 MG, UNK
  8. VYTORIN [Concomitant]
     Active Substance: EZETIMIBE\SIMVASTATIN
     Indication: PRODUCT USED FOR UNKNOWN INDICATION
     Dosage: 10/40MG
     Dates: start: 20060714
  9. TRAZODONE [Concomitant]
     Active Substance: TRAZODONE HYDROCHLORIDE
     Indication: DEPRESSION
     Dosage: 50 MG, UNK
  10. LOMOTIL [Concomitant]
     Active Substance: ATROPINE SULFATE\DIPHENOXYLATE HYDROCHLORIDE
     Indication: ABDOMINAL PAIN
     Dosage: 2.5-0.0025 QID
  11. KLOR-CON [Concomitant]
     Active Substance: POTASSIUM CHLORIDE
     Indication: BLOOD POTASSIUM
     Dosage: 20 MG,QD
     Dates: start: 201111

REACTIONS (3)
  - Diverticulitis [Unknown]
  - Haematochezia [Unknown]
  - Sprue-like enteropathy [Not Recovered/Not Resolved]

NARRATIVE: CASE EVENT DATE: 20060714
